FAERS Safety Report 10375423 (Version 1)
Quarter: 2014Q3

REPORT INFORMATION
  Report Type: Report from Study
  Country: US (occurrence: US)
  Receive Date: 20140811
  Receipt Date: 20140811
  Transmission Date: 20150326
  Serious: Yes (Death, Other)
  Sender: FDA-Public Use
  Company Number: US-ASTELLAS-2014US009265

PATIENT
  Sex: Male

DRUGS (4)
  1. ERLOTINIB [Suspect]
     Active Substance: ERLOTINIB
     Indication: MALIGNANT RESPIRATORY TRACT NEOPLASM
     Route: 048
  2. ERLOTINIB [Suspect]
     Active Substance: ERLOTINIB
     Indication: METASTASES TO LIVER
  3. ERLOTINIB [Suspect]
     Active Substance: ERLOTINIB
     Indication: METASTASIS
  4. ERLOTINIB [Suspect]
     Active Substance: ERLOTINIB
     Indication: METASTASIS

REACTIONS (4)
  - Metastasis [Unknown]
  - Rash [Unknown]
  - Fatigue [Unknown]
  - Death [Fatal]
